FAERS Safety Report 6299893-5 (Version None)
Quarter: 2009Q3

REPORT INFORMATION
  Report Type: 
  Country: None (occurrence: None)
  Receive Date: 20090806
  Receipt Date: 20090729
  Transmission Date: 20100115
  Serious: Yes (Hospitalization)
  Sender: FDA-Public Use
  Company Number: PHHY2009US31727

PATIENT
  Age: 53 Year
  Sex: Male

DRUGS (11)
  1. SANDOSTATIN [Suspect]
     Indication: OESOPHAGEAL VARICES HAEMORRHAGE
     Dosage: 50 UG, UNK
  2. PANTOPRAZOLE SODIUM [Concomitant]
     Dosage: 80 MG
  3. THIAMINE HCL [Concomitant]
  4. FOLIC ACID [Concomitant]
     Route: 042
  5. CIPROFLOXACIN HYDROCHLORIDE [Concomitant]
  6. CHLORDIAZEPOXIDE [Concomitant]
     Route: 048
  7. ESOMEPRAZOLE [Concomitant]
     Route: 042
  8. ESOMEPRAZOLE [Concomitant]
     Dosage: 40 MG/DAY
     Route: 048
  9. PROPRANOLOL [Concomitant]
     Dosage: 1
  10. LISINOPRIL [Concomitant]
     Dosage: 40 MG/DAY
  11. ATORVASTATIN [Concomitant]
     Dosage: 10 MG/DAY

REACTIONS (1)
  - THROMBOCYTOPENIA [None]
